FAERS Safety Report 20448758 (Version 1)
Quarter: 2022Q1

REPORT INFORMATION
  Report Type: Spontaneous
  Country: GB (occurrence: GB)
  Receive Date: 20220209
  Receipt Date: 20220209
  Transmission Date: 20220423
  Serious: Yes (Other)
  Sender: FDA-Public Use
  Company Number: None

PATIENT
  Age: 81 Year
  Sex: Male
  Weight: 75 kg

DRUGS (10)
  1. NITROFURANTOIN [Suspect]
     Active Substance: NITROFURANTOIN
     Indication: Product used for unknown indication
     Dosage: 100 MILLIGRAM
     Dates: start: 20210803
  2. ASPIRIN [Concomitant]
     Active Substance: ASPIRIN
     Dosage: 1 DOSAGE FORM, QD
     Dates: start: 20210211
  3. ATORVASTATIN [Concomitant]
     Active Substance: ATORVASTATIN
     Dosage: 0.5 DOSAGE FORM, QD, AT NIGHT
     Dates: start: 20170831
  4. MELATONIN [Concomitant]
     Active Substance: MELATONIN
     Dosage: 1 DOSAGE FORM, QD, EARLY EVENING
     Dates: start: 20210513
  5. KETOCONAZOLE [Concomitant]
     Active Substance: KETOCONAZOLE
     Dosage: 1 DOSAGE FORM, QD, LEAVE ON FOR 5 MINUTES THEN RINSE OUT
     Dates: start: 20190714
  6. POLYETHYLENE GLYCOL 3350\POTASSIUM CHLORIDE\SODIUM BICARBONATE\SODIUM [Concomitant]
     Active Substance: POLYETHYLENE GLYCOL 3350\POTASSIUM CHLORIDE\SODIUM BICARBONATE\SODIUM CHLORIDE
     Dosage: UNK, USE AS DIRECTED
     Dates: start: 20200722
  7. BENSERAZIDE HYDROCHLORIDE\LEVODOPA [Concomitant]
     Active Substance: BENSERAZIDE HYDROCHLORIDE\LEVODOPA
     Dosage: 1 DOSAGE FORM, BID
     Dates: start: 20210826
  8. MOMETASONE [Concomitant]
     Active Substance: MOMETASONE
     Dosage: 2 DOSAGE FORM, QD, SPRAYS
     Dates: start: 20191122
  9. RASAGILINE [Concomitant]
     Active Substance: RASAGILINE
     Dosage: 1 DOSAGE FORM, QD
     Dates: start: 20210211
  10. Balneum [Concomitant]
     Dosage: UNK, BID, APPLY TO ARMS AND LEGS
     Dates: start: 20211020

REACTIONS (3)
  - Hallucination [Unknown]
  - Delirium [Unknown]
  - Drug interaction [Recovered/Resolved]

NARRATIVE: CASE EVENT DATE: 20220123
